FAERS Safety Report 11579071 (Version 5)
Quarter: 2015Q4

REPORT INFORMATION
  Report Type: Spontaneous
  Country: JP (occurrence: JP)
  Receive Date: 20150930
  Receipt Date: 20151207
  Transmission Date: 20160304
  Serious: Yes (Hospitalization, Other)
  Sender: FDA-Public Use
  Company Number: JP-BAYER-2015-425486

PATIENT
  Age: 74 Year
  Sex: Male

DRUGS (3)
  1. ACETYLSALICYLIC ACID({=100 MG) [Suspect]
     Active Substance: ASPIRIN
     Dosage: 100 MG, QD
     Route: 048
     Dates: start: 201210, end: 201412
  2. CLOPIDOGREL SULFATE [Interacting]
     Active Substance: CLOPIDOGREL BISULFATE
     Route: 048
  3. WARFARIN POTASSIUM [Interacting]
     Active Substance: WARFARIN POTASSIUM
     Route: 048

REACTIONS (5)
  - Haemorrhagic anaemia [Recovered/Resolved]
  - Labelled drug-drug interaction medication error [None]
  - Melaena [Recovered/Resolved]
  - Gastrointestinal haemorrhage [Recovered/Resolved]
  - Gastrointestinal telangiectasia [None]

NARRATIVE: CASE EVENT DATE: 20140909
